FAERS Safety Report 6645449-1 (Version None)
Quarter: 2010Q1

REPORT INFORMATION
  Report Type: 
  Country: None (occurrence: None)
  Receive Date: 20100322
  Receipt Date: 20100317
  Transmission Date: 20100710
  Serious: Yes (Life-Threatening)
  Sender: FDA-Public Use
  Company Number: PL-ASTRAZENECA-2010SE11620

PATIENT
  Age: 25497 Day
  Sex: Female
  Weight: 78 kg

DRUGS (9)
  1. ATACAND [Suspect]
     Indication: HYPERTENSION
     Route: 048
     Dates: start: 20090910, end: 20090919
  2. ACARD [Concomitant]
     Indication: CORONARY ARTERY DISEASE
     Route: 048
  3. TIALORID [Concomitant]
     Route: 048
     Dates: start: 20090101
  4. VIVACE [Concomitant]
     Route: 048
     Dates: start: 20090101
  5. BISOCARD [Concomitant]
     Route: 048
     Dates: start: 20090101
  6. ZOCOR [Concomitant]
     Route: 048
     Dates: start: 20090101
  7. ELTROXIN [Concomitant]
     Route: 048
     Dates: start: 20090101
  8. NILORGIN [Concomitant]
     Route: 048
     Dates: start: 20090101
  9. LACIPIL [Concomitant]
     Route: 048
     Dates: start: 20091125

REACTIONS (1)
  - SWOLLEN TONGUE [None]
